FAERS Safety Report 12500722 (Version 3)
Quarter: 2016Q3

REPORT INFORMATION
  Report Type: Spontaneous
  Country: DK (occurrence: IT)
  Receive Date: 20160627
  Receipt Date: 20160826
  Transmission Date: 20161109
  Serious: Yes (Hospitalization)
  Sender: FDA-Public Use
  Company Number: IT-FRI-1000085538

PATIENT
  Age: 28 Year
  Sex: Female
  Weight: 39 kg

DRUGS (8)
  1. ESCITALOPRAM [Suspect]
     Active Substance: ESCITALOPRAM OXALATE
     Dosage: 10 MG
     Route: 048
     Dates: start: 20160320
  2. BUSCOPAN [Concomitant]
     Active Substance: BUTYLSCOPOLAMINE BROMIDE
     Indication: ABDOMINAL PAIN
     Route: 048
     Dates: start: 20160324, end: 20160324
  3. PREDNISONE. [Concomitant]
     Active Substance: PREDNISONE
     Indication: CROHN^S DISEASE
     Dosage: 20 MG
     Route: 048
     Dates: start: 20160304
  4. ESCITALOPRAM [Suspect]
     Active Substance: ESCITALOPRAM OXALATE
     Indication: PAIN
     Dosage: 5 MG
     Route: 048
     Dates: start: 201601, end: 20160319
  5. OPTALIDON [Concomitant]
     Active Substance: ACETAMINOPHEN\CAFFEINE OR CAFFEINE\PROPYPHENAZONE OR IBUPROFEN
     Indication: HEADACHE
     Dosage: 1 DF
     Route: 048
     Dates: start: 20160330, end: 20160330
  6. RIVOTRIL [Concomitant]
     Active Substance: CLONAZEPAM
     Indication: INSOMNIA
     Dosage: UNIT DOSE: 10-15 DROPS (PRN)
     Route: 048
     Dates: start: 2013
  7. CALCITRIOL. [Concomitant]
     Active Substance: CALCITRIOL
     Indication: VITAMIN SUPPLEMENTATION
     Dosage: .25 MG
     Route: 048
     Dates: start: 20160221
  8. FORTIMEL CREME [Concomitant]
     Indication: NUTRITIONAL SUPPLEMENTATION
     Dosage: 2 DFS
     Route: 048
     Dates: start: 20160219

REACTIONS (6)
  - Hypotension [Not Recovered/Not Resolved]
  - Hyperhidrosis [Not Recovered/Not Resolved]
  - Dehydration [Recovered/Resolved]
  - Syncope [Not Recovered/Not Resolved]
  - Vomiting [Not Recovered/Not Resolved]
  - Product use issue [Unknown]

NARRATIVE: CASE EVENT DATE: 201601
